FAERS Safety Report 15105154 (Version 1)
Quarter: 2018Q3

REPORT INFORMATION
  Report Type: Spontaneous
  Country: US (occurrence: US)
  Receive Date: 20180704
  Receipt Date: 20180704
  Transmission Date: 20181010
  Serious: No
  Sender: FDA-Public Use
  Company Number: US-ASTRAZENECA-2018SE73764

PATIENT
  Age: 887 Month
  Sex: Male
  Weight: 72.6 kg

DRUGS (4)
  1. BRILINTA [Suspect]
     Active Substance: TICAGRELOR
     Indication: STENT PLACEMENT
     Route: 048
     Dates: start: 201410, end: 2016
  2. BRILINTA [Suspect]
     Active Substance: TICAGRELOR
     Indication: STENT PLACEMENT
     Route: 048
     Dates: start: 2017
  3. ASPIRIN. [Concomitant]
     Active Substance: ASPIRIN
     Route: 048
  4. BRILINTA [Suspect]
     Active Substance: TICAGRELOR
     Indication: STENT PLACEMENT
     Dosage: 90MG, WAS CUT IN HALF, AND ONE HALF OF TABLET TAKEN TWICE A DAY
     Route: 048
     Dates: start: 2016, end: 2017

REACTIONS (9)
  - Back disorder [Unknown]
  - Precancerous skin lesion [Recovered/Resolved]
  - Intentional product use issue [Recovered/Resolved]
  - Haemorrhage [Recovered/Resolved]
  - Tooth infection [Recovered/Resolved]
  - Off label use [Recovered/Resolved]
  - Contusion [Recovered/Resolved]
  - Product use issue [Recovered/Resolved]
  - Toothache [Recovered/Resolved]

NARRATIVE: CASE EVENT DATE: 201410
